FAERS Safety Report 17572680 (Version 1)
Quarter: 2020Q1

REPORT INFORMATION
  Report Type: Spontaneous
  Country: US (occurrence: US)
  Receive Date: 20200323
  Receipt Date: 20200323
  Transmission Date: 20200409
  Serious: Yes (Death)
  Sender: FDA-Public Use
  Company Number: None

PATIENT
  Sex: Male

DRUGS (19)
  1. TAMSULOSIN [Concomitant]
     Active Substance: TAMSULOSIN
  2. VITAMIN D [Concomitant]
     Active Substance: VITAMIN D NOS
  3. AMITRIPTYLIN [Concomitant]
     Active Substance: AMITRIPTYLINE
  4. FOLIC ACID. [Concomitant]
     Active Substance: FOLIC ACID
  5. HYDROCODONE [Concomitant]
     Active Substance: HYDROCODONE
  6. OMEPRAZOLE. [Concomitant]
     Active Substance: OMEPRAZOLE
  7. PREDNISONE. [Concomitant]
     Active Substance: PREDNISONE
  8. HUMIRA [Suspect]
     Active Substance: ADALIMUMAB
     Indication: RHEUMATOID ARTHRITIS
     Dosage: ?          OTHER FREQUENCY:Q 7 DAYS;?
     Route: 058
     Dates: start: 20171006
  9. CALCIUM [Concomitant]
     Active Substance: CALCIUM
  10. ZOLPIDEM [Concomitant]
     Active Substance: ZOLPIDEM TARTRATE
  11. ATENOLOL. [Concomitant]
     Active Substance: ATENOLOL
  12. JUICE/FIBRE [Concomitant]
  13. LIPITOR [Concomitant]
     Active Substance: ATORVASTATIN CALCIUM
  14. COENZYME Q10 [Concomitant]
     Active Substance: UBIDECARENONE
  15. MAGNESIUM [Concomitant]
     Active Substance: MAGNESIUM
  16. ZINC. [Concomitant]
     Active Substance: ZINC
  17. ASPIRIN. [Concomitant]
     Active Substance: ASPIRIN
  18. LEFLUNOMIDE. [Concomitant]
     Active Substance: LEFLUNOMIDE
  19. PRAMIPEXOLE. [Concomitant]
     Active Substance: PRAMIPEXOLE

REACTIONS (1)
  - Death [None]
